FAERS Safety Report 23126974 (Version 6)
Quarter: 2024Q2

REPORT INFORMATION
  Report Type: Spontaneous
  Country: DE (occurrence: DE)
  Receive Date: 20231030
  Receipt Date: 20240625
  Transmission Date: 20240715
  Serious: Yes (Other)
  Sender: FDA-Public Use
  Company Number: DE-ROCHE-3262474

PATIENT
  Sex: Female

DRUGS (25)
  1. BENDAMUSTINE HYDROCHLORIDE [Suspect]
     Active Substance: BENDAMUSTINE HYDROCHLORIDE
     Indication: Diffuse large B-cell lymphoma
     Dosage: UNK (THIRD LINE WITH POLATUZUMAB AND RITUXIMAB, THREE TIMES)
     Route: 042
     Dates: start: 20220613, end: 20220920
  2. CYCLOPHOSPHAMIDE\DOXORUBICIN\PREDNISONE\VINCRISTINE [Suspect]
     Active Substance: CYCLOPHOSPHAMIDE\DOXORUBICIN\PREDNISONE\VINCRISTINE
     Indication: Diffuse large B-cell lymphoma
     Dosage: UNK (FIRST LINE WITH RITUXIMAB)
     Route: 065
     Dates: start: 20210701, end: 20211101
  3. CYCLOPHOSPHAMIDE [Suspect]
     Active Substance: CYCLOPHOSPHAMIDE
     Indication: Diffuse large B-cell lymphoma
     Dosage: UNK
     Route: 065
     Dates: start: 20200401, end: 20200801
  4. CISPLATIN\CYTARABINE\DEXAMETHASONE [Suspect]
     Active Substance: CISPLATIN\CYTARABINE\DEXAMETHASONE
     Indication: Diffuse large B-cell lymphoma
     Dosage: UNK (SECOND LINE WITH RITUXIMAB, TWICE)
     Route: 065
     Dates: start: 20220330, end: 20220525
  5. DOXORUBICIN [Suspect]
     Active Substance: DOXORUBICIN
     Indication: Diffuse large B-cell lymphoma
     Dosage: UNK , DRUG SEPARATE DOSAGE NUMBER:1
     Route: 065
     Dates: start: 20200401, end: 20200801
  6. OBINUTUZUMAB [Suspect]
     Active Substance: OBINUTUZUMAB
     Indication: Diffuse large B-cell lymphoma
     Dosage: UNK (FOURTH LINE WITH VENETOCLAX, IBRUTINIB, PREDNISOLONE, LENALOMIDE AND RADIOTHERAPY)
     Route: 042
     Dates: start: 20220927, end: 20221117
  7. IBRUTINIB [Suspect]
     Active Substance: IBRUTINIB
     Indication: Diffuse large B-cell lymphoma
     Dosage: UNK
     Route: 048
     Dates: start: 20210901, end: 20220901
  8. IBRUTINIB [Suspect]
     Active Substance: IBRUTINIB
     Dosage: FIRST ADMIN DATE SEP 2022
     Route: 048
     Dates: end: 20230506
  9. IBRUTINIB [Suspect]
     Active Substance: IBRUTINIB
     Dosage: UNK DRUG SEPARATE DOSAGE NUMBER:1
     Route: 065
     Dates: start: 20220901, end: 20230605
  10. IMBRUVICA [Suspect]
     Active Substance: IBRUTINIB
     Dosage: UNK
     Route: 048
     Dates: start: 20210901, end: 20220901
  11. IMBRUVICA [Suspect]
     Active Substance: IBRUTINIB
     Dosage: UNK
     Route: 048
     Dates: start: 20220901, end: 20230605
  12. IMBRUVICA [Suspect]
     Active Substance: IBRUTINIB
     Dosage: UNK
     Route: 065
  13. IMBRUVICA [Suspect]
     Active Substance: IBRUTINIB
     Indication: Diffuse large B-cell lymphoma
     Dosage: UNK (FOURTH LINE WITH OBINUTUZUMAB, VENETOCLAX, PREDNISOLONE, LENALOMIDE AND RADIOTHERAPY)
     Route: 048
     Dates: start: 20220927, end: 20221117
  14. LENALIDOMIDE [Suspect]
     Active Substance: LENALIDOMIDE
     Indication: Diffuse large B-cell lymphoma
     Dosage: UNK (FOURTH LINE WITH OBINUTUZUMAB, IBRUTINIB, PREDNISOLONE, VENETOCLAX AND RADIOTHERAPY)
     Route: 065
     Dates: start: 20220927, end: 20221117
  15. MABTHERA [Suspect]
     Active Substance: RITUXIMAB
     Indication: Diffuse large B-cell lymphoma
     Dosage: UNK, DRUG SEPARATE DOSAGE NUMBER:1
     Route: 065
     Dates: start: 20200401, end: 20200801
  16. OBINUTUZUMAB [Suspect]
     Active Substance: OBINUTUZUMAB
     Indication: Diffuse large B-cell lymphoma
     Dosage: UNK UNK, UNKNOWN FREQ., FOURTH LINE WITH VENETOCLAX, IBRUTINIB, PREDNISOLONE, LENALOMIDE AND RADIOTH
     Route: 042
     Dates: start: 20220927, end: 20221117
  17. POLATUZUMAB VEDOTIN [Suspect]
     Active Substance: POLATUZUMAB VEDOTIN
     Indication: Diffuse large B-cell lymphoma
     Dosage: UNK (THIRD LINE WITH RITUXIMAB AND BENDAMUSTINE, THREE TIMES)
     Route: 065
     Dates: start: 20220613, end: 20220920
  18. PREDNISONE [Suspect]
     Active Substance: PREDNISONE
     Indication: Diffuse large B-cell lymphoma
     Dosage: UNK (FOURTH LINE WITH OBINUTUZUMAB, IBRUTINIB, VENETCLAX, LENALOMIDE AND RADIOTHERAPY)
     Route: 065
     Dates: start: 20200401, end: 20200801
  19. RITUXIMAB [Suspect]
     Active Substance: RITUXIMAB
     Indication: Diffuse large B-cell lymphoma
     Dosage: UNK (FIRST LINE WITH CHOP)
     Route: 065
     Dates: start: 20210701, end: 20211101
  20. RITUXIMAB [Suspect]
     Active Substance: RITUXIMAB
     Dosage: UNK (SECOND LINE WITH DHAP, TWICE)
     Route: 065
     Dates: start: 20220330, end: 20220525
  21. RITUXIMAB [Suspect]
     Active Substance: RITUXIMAB
     Dosage: UNK (THIRD LINE WITH POLATUZUMAB AND BENDAMUSTINE, THREE TIMES)
     Route: 065
     Dates: start: 20220613, end: 20220920
  22. VENETOCLAX [Suspect]
     Active Substance: VENETOCLAX
     Dosage: UNK
     Route: 048
     Dates: start: 20220901, end: 20230605
  23. VENETOCLAX [Suspect]
     Active Substance: VENETOCLAX
     Dosage: UNK
     Route: 065
  24. VENETOCLAX [Suspect]
     Active Substance: VENETOCLAX
     Indication: Diffuse large B-cell lymphoma
     Dosage: UNK (FOURTH LINE WITH OBINUTUZUMAB, IBRUTINIB, PREDNISOLONE, LENALOMIDE AND RADIOTHERAPY)
     Route: 048
     Dates: start: 20220927, end: 20221117
  25. VINCRISTINE [Suspect]
     Active Substance: VINCRISTINE
     Indication: Diffuse large B-cell lymphoma
     Dosage: UNK DRUG SEPARATE DOSAGE NUMBER:1
     Route: 065
     Dates: start: 20200401, end: 20200801

REACTIONS (5)
  - Malignant neoplasm progression [Unknown]
  - Lymphoma [Not Recovered/Not Resolved]
  - Diffuse large B-cell lymphoma [Not Recovered/Not Resolved]
  - Non-Hodgkin^s lymphoma [Not Recovered/Not Resolved]
  - Off label use [Unknown]
